FAERS Safety Report 8884965 (Version 1)
Quarter: 2012Q4

REPORT INFORMATION
  Report Type: 
  Country: US (occurrence: US)
  Receive Date: 20121105
  Receipt Date: 20121105
  Transmission Date: 20130627
  Serious: No
  Sender: FDA-Public Use
  Company Number: US-009507513-1210USA013115

PATIENT
  Sex: Male

DRUGS (2)
  1. VICTRELIS [Suspect]
     Dosage: UNK
  2. ISENTRESS [Suspect]
     Dosage: UNK

REACTIONS (3)
  - Cyst [Unknown]
  - Skin ulcer [Unknown]
  - Rash [Unknown]
